FAERS Safety Report 4866268-2 (Version None)
Quarter: 2005Q4

REPORT INFORMATION
  Report Type: 
  Country: None (occurrence: None)
  Receive Date: 20051221
  Receipt Date: 20051208
  Transmission Date: 20060501
  Serious: Yes (Hospitalization)
  Sender: FDA-Public Use
  Company Number: US-2005-026470

PATIENT
  Age: 55 Year
  Sex: Female

DRUGS (3)
  1. CAMPATH [Suspect]
     Indication: T-CELL LYMPHOMA
     Dosage: SEE IMAGE
     Route: 042
     Dates: start: 20051101, end: 20051101
  2. CAMPATH [Suspect]
     Indication: T-CELL LYMPHOMA
     Dosage: SEE IMAGE
     Route: 042
     Dates: start: 20051128, end: 20051202
  3. NEUPOGEN [Concomitant]

REACTIONS (5)
  - BONE PAIN [None]
  - CHILLS [None]
  - FACIAL PALSY [None]
  - NAUSEA [None]
  - VOMITING [None]
